FAERS Safety Report 5429128-4 (Version None)
Quarter: 2007Q3

REPORT INFORMATION
  Report Type: 
  Country: None (occurrence: None)
  Receive Date: 20070824
  Receipt Date: 20070810
  Transmission Date: 20080115
  Serious: Yes (Life-Threatening)
  Sender: FDA-Public Use
  Company Number: 159938ISR

PATIENT
  Age: 40 Year
  Sex: Female

DRUGS (8)
  1. FLUOROURACIL INJ [Suspect]
     Dosage: (5G/100ML) 760M/DAY (CYCLICAL) INTRAVENOUS (NOT OTHERWISE SPECIFIED)
     Route: 042
     Dates: start: 20070807, end: 20070807
  2. OXALIPLATIN [Suspect]
     Dosage: 65 MG/M2 (5 MG/ML, CYCLICAL) INTRAVENOUS (NOT OTHERWISE SPECIFIED)
     Route: 042
     Dates: start: 20070807, end: 20070807
  3. CHLORPHENIRAMINE MALEATE [Suspect]
     Dosage: (10 MG/ML) INTRAVENOUS (NOT OTHERWISE SPECIFIED)
     Route: 042
     Dates: start: 20070807, end: 20070807
  4. ONDANSETRON [Suspect]
     Dosage: 8MG/4ML INTRAVENOUS (NOT OTHERWISE SPECIFIED)
     Route: 042
     Dates: start: 20070807, end: 20070807
  5. DEXAMETHASONE 0.5MG TAB [Suspect]
     Dosage: (4 MG/ML) INTRAVENOUS (NOT OTHERWISE SPECIFIED)
     Route: 042
     Dates: start: 20070807, end: 20070807
  6. CALCIUM GLUCONATE [Suspect]
     Dosage: 1000MG/10ML INTRAVENOUS (NOT OTHERWISE SPECIFIED)
     Route: 042
     Dates: start: 20070807, end: 20070807
  7. MAGNESIUM SULFATE [Suspect]
  8. RANITIDINE HYDROCHLORIDE [Suspect]
     Dosage: (50MG/5ML) 100MG/DAY (CYCLICAL) INTRAVENOUS (NOT OTHERWISE SPECIFIED)
     Route: 042

REACTIONS (2)
  - BLOOD BILIRUBIN INCREASED [None]
  - DISSEMINATED INTRAVASCULAR COAGULATION [None]
